FAERS Safety Report 9303519 (Version 1)
Quarter: 2013Q2

REPORT INFORMATION
  Report Type: Spontaneous
  Country: US (occurrence: None)
  Receive Date: 20130521
  Receipt Date: 20130521
  Transmission Date: 20140414
  Serious: Yes (Disabling, Other)
  Sender: FDA-Public Use
  Company Number: None

PATIENT
  Age: 79 Year
  Sex: Female
  Weight: 83.92 kg

DRUGS (1)
  1. LATANOPROST 0.005 % OPHTHALMIC SOLUTION [Suspect]
     Indication: GLAUCOMA
     Dosage: 1 DROP EACH EYE
     Dates: start: 20121104, end: 20130104

REACTIONS (2)
  - Intraocular pressure increased [None]
  - Product substitution issue [None]
